FAERS Safety Report 25806992 (Version 1)
Quarter: 2025Q3

REPORT INFORMATION
  Report Type: Spontaneous
  Country: EU (occurrence: EU)
  Receive Date: 20250916
  Receipt Date: 20250916
  Transmission Date: 20251020
  Serious: Yes (Death, Other)
  Sender: HIKMA
  Company Number: None

PATIENT
  Age: 52 Year
  Sex: Male

DRUGS (3)
  1. BLEOMYCIN [Suspect]
     Active Substance: BLEOMYCIN SULFATE
     Indication: Testicular seminoma (pure)
     Route: 042
     Dates: start: 20250602, end: 20250602
  2. CISPLATIN [Concomitant]
     Active Substance: CISPLATIN
     Indication: Testicular seminoma (pure)
     Route: 042
     Dates: start: 20250602
  3. ETOPOSIDE [Concomitant]
     Active Substance: ETOPOSIDE
     Indication: Testicular seminoma (pure)
     Route: 042
     Dates: start: 20250602

REACTIONS (2)
  - Eosinophilic pneumonia [Fatal]
  - Thrombotic microangiopathy [Fatal]

NARRATIVE: CASE EVENT DATE: 20250616
